FAERS Safety Report 8734234 (Version 4)
Quarter: 2017Q3

REPORT INFORMATION
  Report Type: Spontaneous
  Country: TR (occurrence: TR)
  Receive Date: 20120821
  Receipt Date: 20170905
  Transmission Date: 20171128
  Serious: Yes (Death, Hospitalization, Other)
  Sender: FDA-Public Use
  Company Number: TR-ALEXION PHARMACEUTICALS INC.-A201201509

PATIENT
  Age: 10 Year
  Sex: Male

DRUGS (3)
  1. SOLIRIS [Suspect]
     Active Substance: ECULIZUMAB
     Indication: HAEMOLYTIC URAEMIC SYNDROME
     Dosage: 600 MG, QW (FOR 2 WEEKS )
     Route: 042
     Dates: start: 201112
  2. SOLIRIS [Suspect]
     Active Substance: ECULIZUMAB
     Indication: OFF LABEL USE
     Dosage: 900 MG, QW (FOR ONE WEEKS)
     Route: 042
  3. SOLIRIS [Suspect]
     Active Substance: ECULIZUMAB
     Dosage: 900 MG, Q2W
     Route: 042
     Dates: start: 20120215, end: 20121002

REACTIONS (5)
  - Cardiac failure [Fatal]
  - Hypertension [Recovered/Resolved]
  - Non-compaction cardiomyopathy [Fatal]
  - Pulmonary oedema [Unknown]
  - Off label use [Unknown]

NARRATIVE: CASE EVENT DATE: 201207
